FAERS Safety Report 7209022-9 (Version None)
Quarter: 2010Q4

REPORT INFORMATION
  Report Type: 
  Country: None (occurrence: None)
  Receive Date: 20101222
  Receipt Date: 20101215
  Transmission Date: 20110411
  Serious: Yes (Other)
  Sender: FDA-Public Use
  Company Number: TRP_07459_2010

PATIENT

DRUGS (2)
  1. RIBAVIRIN [Suspect]
     Indication: HEPATITIS C
     Dosage: (DF)
  2. PEGINTERFERON ALFA-2A [Suspect]
     Indication: HEPATITIS C
     Dosage: (DF)

REACTIONS (4)
  - DECREASED APPETITE [None]
  - HORMONE LEVEL ABNORMAL [None]
  - IMPAIRED GASTRIC EMPTYING [None]
  - WEIGHT DECREASED [None]
